FAERS Safety Report 15762781 (Version 2)
Quarter: 2019Q1

REPORT INFORMATION
  Report Type: Spontaneous
  Country: ES (occurrence: ES)
  Receive Date: 20181226
  Receipt Date: 20190102
  Transmission Date: 20190417
  Serious: Yes (Hospitalization)
  Sender: FDA-Public Use
  Company Number: ES-MYLANLABS-2018M1095840

PATIENT
  Age: 74 Year
  Sex: Male

DRUGS (5)
  1. ZONISAMIDE. [Suspect]
     Active Substance: ZONISAMIDE
     Indication: TREMOR
     Dosage: 50 MILLIGRAM, QD (0-0-1)
     Route: 048
     Dates: start: 20160316
  2. SYRON (FERRIMANNITOL OVALBUMIN) [Suspect]
     Active Substance: FERRIC OXIDE RED
     Indication: ANAEMIA
     Dosage: 80 MILLIGRAM, QD,(1-0-0)
     Route: 048
     Dates: start: 20180427
  3. BRILIQUE [Suspect]
     Active Substance: TICAGRELOR
     Indication: ACUTE MYOCARDIAL INFARCTION
     Dosage: 90 MILLIGRAM, BID (1-0-1)
     Route: 048
     Dates: start: 20180312
  4. ATORVASTATIN [Suspect]
     Active Substance: ATORVASTATIN
     Indication: ACUTE MYOCARDIAL INFARCTION
     Dosage: 40 MICROGRAM, QD (0-0-1)
     Route: 048
     Dates: start: 20180312, end: 20180615
  5. ADIRO [Suspect]
     Active Substance: ASPIRIN
     Indication: ACUTE MYOCARDIAL INFARCTION
     Dosage: 100 MILLIGRAM, QD (1-0-0)
     Route: 048
     Dates: start: 20180312

REACTIONS (1)
  - Hepatitis toxic [Recovering/Resolving]

NARRATIVE: CASE EVENT DATE: 20180617
